FAERS Safety Report 11146460 (Version 1)
Quarter: 2015Q2

REPORT INFORMATION
  Report Type: Spontaneous
  Country: US (occurrence: US)
  Receive Date: 20150528
  Receipt Date: 20150528
  Transmission Date: 20150821
  Serious: No
  Sender: FDA-Public Use
  Company Number: US-009507513-1504USA023848

PATIENT
  Age: 42 Year
  Sex: Female

DRUGS (1)
  1. GANIRELIX ACETATE INJECTION [Suspect]
     Active Substance: GANIRELIX ACETATE
     Indication: IN VITRO FERTILISATION
     Dosage: ROUTE:INJECTION
     Dates: start: 20150426

REACTIONS (8)
  - Haemorrhage [Unknown]
  - Injection site haemorrhage [Not Recovered/Not Resolved]
  - Drug dose omission [Unknown]
  - Agitation [Unknown]
  - Nervousness [Unknown]
  - Disorganised speech [Unknown]
  - Injection site pain [Not Recovered/Not Resolved]
  - Pressure of speech [Unknown]

NARRATIVE: CASE EVENT DATE: 2015
